FAERS Safety Report 13182020 (Version 1)
Quarter: 2017Q1

REPORT INFORMATION
  Report Type: Spontaneous
  Country: US (occurrence: US)
  Receive Date: 20170202
  Receipt Date: 20170202
  Transmission Date: 20170428
  Serious: No
  Sender: FDA-Public Use
  Company Number: US-IMPAX LABORATORIES, INC-2016-IPXL-02469

PATIENT
  Age: 66 Year
  Sex: Female

DRUGS (2)
  1. RYTARY [Suspect]
     Active Substance: CARBIDOPA\LEVODOPA
     Dosage: (36.25/145) MG, 3 CAPSULES, 3 TIMES DAILY
     Route: 048
     Dates: start: 201612
  2. RYTARY [Suspect]
     Active Substance: CARBIDOPA\LEVODOPA
     Indication: PRODUCT USED FOR UNKNOWN INDICATION
     Dosage: UNK, 1 CAPSULE TID
     Route: 065

REACTIONS (4)
  - Musculoskeletal stiffness [Unknown]
  - Feeling hot [Unknown]
  - Drug administration error [Unknown]
  - Drug ineffective [Unknown]
